FAERS Safety Report 9908361 (Version 1)
Quarter: 2014Q1

REPORT INFORMATION
  Report Type: Spontaneous
  Country: US (occurrence: None)
  Receive Date: 20140214
  Receipt Date: 20140214
  Transmission Date: 20141002
  Serious: Yes (Hospitalization)
  Sender: FDA-Public Use
  Company Number: None

PATIENT
  Age: 61 Year
  Sex: Female
  Weight: 100.9 kg

DRUGS (12)
  1. COUMADIN [Suspect]
     Indication: MASTECTOMY
     Dosage: RECENT
     Route: 048
  2. COUMADIN [Suspect]
     Indication: BREAST RECONSTRUCTION
     Dosage: RECENT
     Route: 048
  3. COUMADIN [Suspect]
     Dosage: RECENT
     Route: 048
  4. LASIX [Concomitant]
  5. GLIPIZIDE [Concomitant]
  6. LORATADINE [Concomitant]
  7. METFORMIN [Concomitant]
  8. VERAPAMIL [Concomitant]
  9. NORCO [Concomitant]
  10. KEFLEX [Concomitant]
  11. PHENERGAN [Concomitant]
  12. FLEXERIL [Concomitant]

REACTIONS (5)
  - Breast haemorrhage [None]
  - Breast swelling [None]
  - Haematoma [None]
  - Heart rate increased [None]
  - Post procedural complication [None]
